FAERS Safety Report 5363254-3 (Version None)
Quarter: 2007Q2

REPORT INFORMATION
  Report Type: 
  Country: None (occurrence: None)
  Receive Date: 20070618
  Receipt Date: 20070618
  Transmission Date: 20071010
  Serious: No
  Sender: FDA-Public Use
  Company Number: None

PATIENT
  Age: 77 Year
  Sex: Female

DRUGS (10)
  1. ZITHROMAX [Suspect]
     Dates: start: 20050811, end: 20050815
  2. MACROBID [Suspect]
     Dates: end: 20050915
  3. SYNTHROID [Concomitant]
  4. .. [Concomitant]
  5. PRILOSEC [Concomitant]
  6. TYLENOL [Concomitant]
  7. ERGOCALCIFEROL [Concomitant]
  8. PEPCID [Concomitant]
  9. PLAQUENIL [Concomitant]
  10. TRILISATE [Concomitant]

REACTIONS (12)
  - BLOOD IMMUNOGLOBULIN G INCREASED [None]
  - BRONCHIAL WALL THICKENING [None]
  - CARDIOMEGALY [None]
  - HEPATITIS CHRONIC ACTIVE [None]
  - HILAR LYMPHADENOPATHY [None]
  - HYPERGAMMAGLOBULINAEMIA [None]
  - INFLAMMATION [None]
  - INTERSTITIAL LUNG DISEASE [None]
  - LIVER INJURY [None]
  - LYMPHADENOPATHY MEDIASTINAL [None]
  - PULMONARY TOXICITY [None]
  - SMOOTH MUSCLE ANTIBODY POSITIVE [None]
